FAERS Safety Report 11206321 (Version 2)
Quarter: 2015Q2

REPORT INFORMATION
  Report Type: Spontaneous
  Country: DE (occurrence: DE)
  Receive Date: 20150622
  Receipt Date: 20150623
  Transmission Date: 20150821
  Serious: Yes (Other)
  Sender: FDA-Public Use
  Company Number: DE-PAR PHARMACEUTICAL, INC-2015SCPR014056

PATIENT

DRUGS (7)
  1. COLY-MYCIN M [Suspect]
     Active Substance: COLISTIMETHATE SODIUM
     Indication: BACTERIAL PYELONEPHRITIS
     Dosage: UNK, UNKNOWN
     Route: 042
  2. FOSFOMYCIN [Suspect]
     Active Substance: FOSFOMYCIN
     Indication: BACTERIAL PYELONEPHRITIS
     Dosage: UNK, UNKNOWN
     Route: 042
  3. FOSFOMYCIN [Suspect]
     Active Substance: FOSFOMYCIN
     Indication: CYSTITIS PSEUDOMONAL
  4. COLISTIN SULFATE [Concomitant]
     Active Substance: COLISTIN SULFATE
     Indication: PROPHYLAXIS
     Dosage: UNK, UNKNOWN
     Route: 048
  5. MEROPENEME [Suspect]
     Active Substance: MEROPENEM
     Indication: BACTERIAL PYELONEPHRITIS
     Dosage: UNK, UNKNOWN
     Route: 042
  6. COLY-MYCIN M [Suspect]
     Active Substance: COLISTIMETHATE SODIUM
     Indication: CYSTITIS PSEUDOMONAL
     Dosage: UNK, UNKNOWN
     Route: 043
  7. MEROPENEME [Suspect]
     Active Substance: MEROPENEM
     Indication: CYSTITIS PSEUDOMONAL

REACTIONS (4)
  - Product use issue [Unknown]
  - Diabetic neuropathy [Unknown]
  - Condition aggravated [Unknown]
  - Drug resistance [Unknown]
